FAERS Safety Report 20669272 (Version 1)
Quarter: 2022Q2

REPORT INFORMATION
  Report Type: Spontaneous
  Country: US (occurrence: None)
  Receive Date: 20220403
  Receipt Date: 20220403
  Transmission Date: 20220721
  Serious: Yes (Hospitalization, Other)
  Sender: FDA-Public Use
  Company Number: None

PATIENT
  Age: 60 Year
  Sex: Female
  Weight: 67.5 kg

DRUGS (1)
  1. ZOMETA [Suspect]
     Active Substance: ZOLEDRONIC ACID
     Dosage: OTHER FREQUENCY : EVERY THREE MONTHS;?
     Route: 042

REACTIONS (9)
  - Swollen tongue [None]
  - Bone pain [None]
  - Arthralgia [None]
  - Pain in extremity [None]
  - Facial pain [None]
  - Back pain [None]
  - Arthralgia [None]
  - Dyspnoea [None]
  - Dizziness [None]

NARRATIVE: CASE EVENT DATE: 20220331
